FAERS Safety Report 7679456-7 (Version None)
Quarter: 2011Q3

REPORT INFORMATION
  Report Type: 
  Country: None (occurrence: None)
  Receive Date: 20110812
  Receipt Date: 20110812
  Transmission Date: 20111222
  Serious: Yes (Other)
  Sender: FDA-Public Use
  Company Number: None

PATIENT
  Sex: Male
  Weight: 74.842 kg

DRUGS (1)
  1. EMEND [Suspect]
     Indication: PROPHYLAXIS OF NAUSEA AND VOMITING
     Dosage: 150MG
     Route: 041
     Dates: start: 20110801, end: 20110801

REACTIONS (12)
  - PANIC DISORDER [None]
  - ABDOMINAL PAIN UPPER [None]
  - BLINDNESS [None]
  - SKIN DISCOLOURATION [None]
  - CHEST PAIN [None]
  - DIZZINESS [None]
  - PALLOR [None]
  - LIVEDO RETICULARIS [None]
  - CHEST DISCOMFORT [None]
  - FLUSHING [None]
  - DYSPNOEA [None]
  - VISUAL IMPAIRMENT [None]
